FAERS Safety Report 25517063 (Version 1)
Quarter: 2025Q3

REPORT INFORMATION
  Report Type: Spontaneous
  Country: US (occurrence: US)
  Receive Date: 20250704
  Receipt Date: 20250704
  Transmission Date: 20251021
  Serious: No
  Sender: RADIUS PHARM
  Company Number: US-RADIUS HEALTH INC.-US-RADIUS-25046634

PATIENT
  Sex: Female

DRUGS (1)
  1. TYMLOS [Suspect]
     Active Substance: ABALOPARATIDE
     Indication: Product used for unknown indication

REACTIONS (8)
  - Gingival pain [Unknown]
  - Noninfective gingivitis [Unknown]
  - Anxiety [Unknown]
  - Erythema [Unknown]
  - Feeling hot [Unknown]
  - Headache [Unknown]
  - Palpitations [Unknown]
  - Heart rate increased [Unknown]
